FAERS Safety Report 8301770-2 (Version None)
Quarter: 2012Q2

REPORT INFORMATION
  Report Type: 
  Country: None (occurrence: None)
  Receive Date: 20120417
  Receipt Date: 20120404
  Transmission Date: 20120825
  Serious: Yes (Hospitalization)
  Sender: FDA-Public Use
  Company Number: 2012MA004702

PATIENT
  Age: 65 Year
  Sex: Female

DRUGS (9)
  1. CITALOPRAM HYDROBROMIDE [Concomitant]
  2. LOSARTAN POTASSIUM [Suspect]
     Dosage: PO
     Route: 048
     Dates: end: 20120308
  3. PREGABALIN [Concomitant]
  4. DICLOFENAC SODIUM [Suspect]
     Dosage: 50 MG;TID;PO
     Route: 048
     Dates: end: 20120308
  5. METOLAZONE [Suspect]
     Dosage: PO
     Route: 048
     Dates: end: 20120308
  6. ALBUTEROL [Concomitant]
  7. KADIAN [Suspect]
     Indication: PAIN
     Dosage: 5 MG;BID;PO
     Route: 048
     Dates: start: 20120304, end: 20120308
  8. PARACETAMOL [Concomitant]
  9. OMEPRAZOLE [Concomitant]

REACTIONS (4)
  - TOXICITY TO VARIOUS AGENTS [None]
  - CONFUSIONAL STATE [None]
  - SOMNOLENCE [None]
  - RENAL FAILURE ACUTE [None]
